FAERS Safety Report 6243891-4 (Version None)
Quarter: 2009Q2

REPORT INFORMATION
  Report Type: 
  Country: None (occurrence: None)
  Receive Date: 20090624
  Receipt Date: 20090616
  Transmission Date: 20091009
  Serious: Yes (Death, Hospitalization, Other)
  Sender: FDA-Public Use
  Company Number: US-GENENTECH-256192

PATIENT
  Age: 68 Year
  Sex: Male

DRUGS (5)
  1. NUTROPIN [Suspect]
     Indication: DRUG THERAPY
     Dosage: 0.6 MG, BID
     Route: 058
  2. PREDNISONE [Concomitant]
     Indication: DRUG USE FOR UNKNOWN INDICATION
     Dosage: 6 MG, QD
     Route: 065
  3. MESALAMINE [Concomitant]
     Indication: DRUG USE FOR UNKNOWN INDICATION
     Route: 065
  4. TESTOSTERONE [Concomitant]
     Indication: DRUG THERAPY
     Dosage: 200 MG, 1/WEEK
     Route: 065
  5. DEHYDROEPIANDROSTERONE [Concomitant]
     Indication: DRUG THERAPY
     Dosage: 100 MG, QD
     Route: 065

REACTIONS (1)
  - COLON CANCER METASTATIC [None]
